FAERS Safety Report 7994697-7 (Version None)
Quarter: 2011Q4

REPORT INFORMATION
  Report Type: 
  Country: None (occurrence: None)
  Receive Date: 20111220
  Receipt Date: 20111205
  Transmission Date: 20120403
  Serious: Yes (Death)
  Sender: FDA-Public Use
  Company Number: PHHY2011US110142

PATIENT
  Age: 82 Year
  Sex: Female

DRUGS (6)
  1. DOCUSATE [Suspect]
  2. CLOZAPINE [Suspect]
     Route: 048
  3. ACETAMINOPHEN [Suspect]
     Route: 048
  4. LITHIUM CARBONATE [Suspect]
  5. HYDROCODONE BITARTRATE [Suspect]
  6. PROPRANOLOL [Suspect]

REACTIONS (1)
  - DEATH [None]
